FAERS Safety Report 4389013-6 (Version None)
Quarter: 2004Q2

REPORT INFORMATION
  Report Type: 
  Country: None (occurrence: None)
  Receive Date: 20040628
  Receipt Date: 20040614
  Transmission Date: 20050107
  Serious: Yes (Hospitalization, Other)
  Sender: FDA-Public Use
  Company Number: 2004038744

PATIENT
  Age: 43 Year
  Sex: Female
  Weight: 63 kg

DRUGS (12)
  1. NORVASC [Suspect]
     Indication: HYPERTENSION
     Dosage: 5 MG (5 MG, 1 IN 1 D), ORAL
     Route: 048
     Dates: start: 20040422, end: 20040607
  2. NIFEDIPINE [Concomitant]
  3. PREDNISOLONE [Concomitant]
  4. LOSARTAN POTASSIUM [Concomitant]
  5. FUROSEMIDE [Concomitant]
  6. FAMOTIDINE [Concomitant]
  7. TEPRENONE (TEPRENONE) [Concomitant]
  8. PRAVASTATIN SODIUM [Concomitant]
  9. ALFACALCIDOL (ALFACALCIDOL) [Concomitant]
  10. CALCIUM LACTATE (CALCIUM LACTATE) [Concomitant]
  11. BUFFERIN [Concomitant]
  12. CEFOTIAM HYDROCHLORIDE [Concomitant]

REACTIONS (19)
  - ALANINE AMINOTRANSFERASE INCREASED [None]
  - ASPARTATE AMINOTRANSFERASE INCREASED [None]
  - BACTERIAL INFECTION [None]
  - BLOOD ALKALINE PHOSPHATASE INCREASED [None]
  - BLOOD CHOLESTEROL INCREASED [None]
  - BLOOD LACTATE DEHYDROGENASE INCREASED [None]
  - BLOOD TRIGLYCERIDES INCREASED [None]
  - CONDITION AGGRAVATED [None]
  - CYSTITIS HAEMORRHAGIC [None]
  - GLUCOSE URINE PRESENT [None]
  - HAEMATOCRIT DECREASED [None]
  - HAEMOGLOBIN DECREASED [None]
  - HISTIOCYTOSIS HAEMATOPHAGIC [None]
  - LUPUS NEPHRITIS [None]
  - PLATELET COUNT DECREASED [None]
  - RED BLOOD CELL COUNT DECREASED [None]
  - URINARY TRACT INFECTION [None]
  - VIRAL INFECTION [None]
  - WHITE BLOOD CELL COUNT INCREASED [None]
